FAERS Safety Report 5007765-9 (Version None)
Quarter: 2006Q2

REPORT INFORMATION
  Report Type: 
  Country: None (occurrence: None)
  Receive Date: 20060522
  Receipt Date: 20060515
  Transmission Date: 20061013
  Serious: Yes (Hospitalization)
  Sender: FDA-Public Use
  Company Number: US-GLAXOSMITHKLINE-A0605614A

PATIENT
  Age: 11 Year
  Sex: Male

DRUGS (2)
  1. LAMICTAL [Suspect]
     Indication: EPILEPSY
     Route: 048
     Dates: start: 20060401
  2. AMOXICILLIN [Concomitant]

REACTIONS (3)
  - ERYTHEMA INFECTIOSUM [None]
  - RASH [None]
  - STEVENS-JOHNSON SYNDROME [None]
